FAERS Safety Report 8915122 (Version 2)
Quarter: 2012Q4

REPORT INFORMATION
  Report Type: 
  Country: DE (occurrence: DE)
  Receive Date: 20121119
  Receipt Date: 20121129
  Transmission Date: 20130627
  Serious: Yes (Hospitalization)
  Sender: FDA-Public Use
  Company Number: DE-JNJFOC-20121107304

PATIENT
  Age: 85 Year
  Sex: Male
  Weight: 75 kg

DRUGS (6)
  1. XARELTO [Suspect]
     Indication: ATRIAL FIBRILLATION
     Route: 048
     Dates: end: 20121102
  2. XARELTO [Suspect]
     Indication: CEREBROVASCULAR ACCIDENT PROPHYLAXIS
     Route: 048
     Dates: end: 20121102
  3. METFORMIN [Suspect]
     Indication: TYPE 2 DIABETES MELLITUS
     Route: 065
     Dates: end: 20121101
  4. RAMIPRIL [Suspect]
     Indication: CARDIAC FAILURE
     Route: 065
     Dates: end: 20121101
  5. FUROSEMID [Suspect]
     Indication: HYPERTENSION
     Route: 065
  6. RAMIPRIL [Suspect]
     Indication: HYPERTENSION
     Route: 065
     Dates: end: 20121101

REACTIONS (1)
  - Renal failure acute [Recovered/Resolved]
